FAERS Safety Report 10253765 (Version 1)
Quarter: 2014Q2

REPORT INFORMATION
  Report Type: Spontaneous
  Country: FR (occurrence: FR)
  Receive Date: 20140623
  Receipt Date: 20140623
  Transmission Date: 20141212
  Serious: Yes (Hospitalization)
  Sender: FDA-Public Use
  Company Number: FR-B.I. PHARMACEUTICALS,INC./RIDGEFIELD-2014-BI-27748FF

PATIENT
  Age: 35 Year
  Sex: Male

DRUGS (7)
  1. SIFROL [Suspect]
     Indication: RESTLESS LEGS SYNDROME
     Dosage: 0.36 MG
     Route: 048
     Dates: start: 20140502, end: 20140521
  2. NORSET [Suspect]
     Indication: DEPRESSION
     Dosage: 30 MG
     Route: 048
     Dates: start: 20140502, end: 20140521
  3. BACLOFENE [Suspect]
     Indication: ALCOHOL WITHDRAWAL SYNDROME
     Dosage: 120 MG
     Route: 048
     Dates: start: 20140502, end: 20140521
  4. NICOBION [Concomitant]
     Route: 065
  5. VITAMINE B1 [Concomitant]
     Route: 065
  6. VITAMINE B6 [Concomitant]
     Route: 065
  7. SEROPLEX [Concomitant]
     Route: 065

REACTIONS (4)
  - Delirium [Recovered/Resolved]
  - Grandiosity [Recovered/Resolved]
  - Mood swings [Recovered/Resolved]
  - Logorrhoea [Recovered/Resolved]
